FAERS Safety Report 8985511 (Version 1)
Quarter: 2012Q4

REPORT INFORMATION
  Report Type: 
  Country: US (occurrence: US)
  Receive Date: 20121226
  Receipt Date: 20121226
  Transmission Date: 20130627
  Serious: Yes (Hospitalization)
  Sender: FDA-Public Use
  Company Number: US-PFIZER INC-2012324065

PATIENT
  Age: 87 Year
  Sex: Female
  Weight: 53.52 kg

DRUGS (4)
  1. REVATIO [Suspect]
     Indication: HEART DISORDER
     Dosage: 20 mg, 3x/day
     Route: 048
  2. COUMADIN [Suspect]
     Dosage: UNK
     Dates: end: 20121013
  3. SIMVASTATIN [Concomitant]
     Indication: BLOOD CHOLESTEROL ABNORMAL
     Dosage: UNK, 1x/day
  4. TOPROL [Concomitant]
     Dosage: UNK, 2x/day

REACTIONS (2)
  - Fall [Recovered/Resolved]
  - Haemarthrosis [Recovered/Resolved]
